FAERS Safety Report 5074650-6 (Version None)
Quarter: 2006Q3

REPORT INFORMATION
  Report Type: 
  Country: None (occurrence: None)
  Receive Date: 20060803
  Receipt Date: 20060726
  Transmission Date: 20061208
  Serious: Yes (Other)
  Sender: FDA-Public Use
  Company Number: 2006-07-1882

PATIENT
  Sex: Male

DRUGS (5)
  1. PEG-INTRON [Suspect]
     Indication: HEPATITIS C
     Dosage: 150 MCG QWK SUBCUTANEOUS
     Route: 058
     Dates: start: 20060401
  2. RIBAVIRIN [Suspect]
     Indication: HEPATITIS C
     Dosage: 1200 MG QD ORAL
     Route: 048
     Dates: start: 20060401
  3. EFFEXOR XR [Concomitant]
  4. GLIPIZIDE [Concomitant]
  5. DIOVAN HCT [Concomitant]

REACTIONS (2)
  - LUNG NEOPLASM MALIGNANT [None]
  - VIRAL LOAD DECREASED [None]
